FAERS Safety Report 6377057-4 (Version None)
Quarter: 2009Q3

REPORT INFORMATION
  Report Type: 
  Country: None (occurrence: None)
  Receive Date: 20090925
  Receipt Date: 20090917
  Transmission Date: 20100115
  Serious: Yes (Life-Threatening, Hospitalization)
  Sender: FDA-Public Use
  Company Number: DE-ABBOTT-09P-062-0597666-00

PATIENT
  Sex: Male
  Weight: 61 kg

DRUGS (2)
  1. KALETRA [Suspect]
     Indication: HIV INFECTION
     Route: 048
     Dates: start: 20090730
  2. TRUVADA [Concomitant]
     Indication: HIV INFECTION
     Dates: start: 20090730

REACTIONS (1)
  - B-CELL LYMPHOMA [None]
